FAERS Safety Report 7372746-7 (Version None)
Quarter: 2011Q1

REPORT INFORMATION
  Report Type: 
  Country: None (occurrence: None)
  Receive Date: 20110324
  Receipt Date: 20110315
  Transmission Date: 20110831
  Serious: Yes (Hospitalization)
  Sender: FDA-Public Use
  Company Number: Z0008452A

PATIENT
  Sex: Male
  Weight: 86.2 kg

DRUGS (3)
  1. FLUDARABINE [Suspect]
     Route: 042
     Dates: start: 20110209
  2. CYCLOPHOSPHAMIDE [Suspect]
     Route: 042
     Dates: start: 20110209
  3. OFATUMUMAB [Suspect]
     Route: 042
     Dates: start: 20110208

REACTIONS (2)
  - COUGH [None]
  - NEUTROPENIA [None]
